FAERS Safety Report 8603263-1 (Version None)
Quarter: 2012Q3

REPORT INFORMATION
  Report Type: 
  Country: None (occurrence: None)
  Receive Date: 20120817
  Receipt Date: 20120808
  Transmission Date: 20120928
  Serious: Yes (Hospitalization)
  Sender: FDA-Public Use
  Company Number: US-ACTELION-A-NJ2012-70107

PATIENT
  Age: 63 Year
  Sex: Female

DRUGS (3)
  1. EPOPROSTENOL SODIUM [Suspect]
     Indication: PULMONARY ARTERIAL HYPERTENSION
     Dosage: 83 NG/KG, PER MIN
     Route: 048
     Dates: start: 20101213
  2. COUMADIN [Concomitant]
  3. SILDENAFIL [Concomitant]

REACTIONS (2)
  - DEHYDRATION [None]
  - HYPOTENSION [None]
